FAERS Safety Report 6696057-8 (Version None)
Quarter: 2010Q2

REPORT INFORMATION
  Report Type: 
  Country: None (occurrence: None)
  Receive Date: 20100426
  Receipt Date: 20100416
  Transmission Date: 20101027
  Serious: Yes (Other)
  Sender: FDA-Public Use
  Company Number: PHBS2008NO00689

PATIENT
  Sex: Female

DRUGS (2)
  1. OXCARBAZEPINE [Suspect]
     Indication: CONVULSION
     Dosage: 1200 MG/D
     Route: 065
  2. LEVETIRACETAM [Suspect]
     Indication: EPILEPSY
     Dosage: 2000 MG/D
     Route: 065

REACTIONS (3)
  - COMPLEX PARTIAL SEIZURES [None]
  - CONVULSION [None]
  - DRUG EXPOSURE DURING PREGNANCY [None]
